FAERS Safety Report 17299671 (Version 2)
Quarter: 2020Q1

REPORT INFORMATION
  Report Type: Spontaneous
  Country: US (occurrence: US)
  Receive Date: 20200122
  Receipt Date: 20200122
  Transmission Date: 20200409
  Serious: No
  Sender: FDA-Public Use
  Company Number: US-ALLERGAN-1906328US

PATIENT
  Sex: Female
  Weight: 99.77 kg

DRUGS (3)
  1. RESTASIS [Suspect]
     Active Substance: CYCLOSPORINE
     Indication: EYE INFECTION
     Dosage: UNK
     Route: 047
  2. RESTASIS [Suspect]
     Active Substance: CYCLOSPORINE
     Indication: EYE INFECTION
     Dosage: 1 GTT, Q12H
     Route: 047
     Dates: start: 20190131
  3. VARIOUS UNSPECIFIED MEDICATIONS [Concomitant]
     Dosage: UNK
     Route: 065

REACTIONS (3)
  - Product container issue [Unknown]
  - Accidental exposure to product [Unknown]
  - Off label use [Unknown]
